FAERS Safety Report 20001183 (Version 1)
Quarter: 2021Q4

REPORT INFORMATION
  Report Type: Spontaneous
  Country: US (occurrence: US)
  Receive Date: 20211027
  Receipt Date: 20211027
  Transmission Date: 20220303
  Serious: Yes (Other)
  Sender: FDA-Public Use
  Company Number: None

PATIENT
  Age: 64 Year
  Sex: Female

DRUGS (8)
  1. SYMBICORT [Suspect]
     Active Substance: BUDESONIDE\FORMOTEROL FUMARATE DIHYDRATE
     Indication: Asthma
     Dates: start: 20210824, end: 20210924
  2. SYMBICORT [Suspect]
     Active Substance: BUDESONIDE\FORMOTEROL FUMARATE DIHYDRATE
     Indication: Pulmonary hypertension
  3. DULERA [Concomitant]
     Active Substance: FORMOTEROL FUMARATE DIHYDRATE\MOMETASONE FUROATE
  4. ALBUTEROL [Concomitant]
     Active Substance: ALBUTEROL
  5. TYLENOL [Concomitant]
     Active Substance: ACETAMINOPHEN
  6. QUERCETIN [Concomitant]
     Active Substance: QUERCETIN
  7. MELATONIN [Concomitant]
     Active Substance: MELATONIN
  8. VITAMINS A,B,C,D [Concomitant]

REACTIONS (10)
  - Cough [None]
  - Syncope [None]
  - Dizziness [None]
  - Muscle spasms [None]
  - Sleep disorder [None]
  - Stomatitis [None]
  - Constipation [None]
  - Malaise [None]
  - Abdominal discomfort [None]
  - Feeling of despair [None]

NARRATIVE: CASE EVENT DATE: 20210924
